FAERS Safety Report 6377431-6 (Version None)
Quarter: 2009Q3

REPORT INFORMATION
  Report Type: 
  Country: None (occurrence: None)
  Receive Date: 20090923
  Receipt Date: 20090923
  Transmission Date: 20100115
  Serious: Yes (Other)
  Sender: FDA-Public Use
  Company Number: None

PATIENT
  Age: 85 Year
  Sex: Male
  Weight: 88.7 kg

DRUGS (7)
  1. LORAZEPAM [Suspect]
     Indication: ANXIETY
     Dosage: 2MG PO ONCE
     Route: 048
     Dates: start: 20090622
  2. LORAZEPAM [Suspect]
     Indication: SEDATION
     Dosage: 2MG PO ONCE
     Route: 048
     Dates: start: 20090622
  3. ERYTHROMYCIN [Concomitant]
  4. INSULIN ASPART [Concomitant]
  5. PAROXETINE [Concomitant]
  6. SIMVASTATIN [Concomitant]
  7. PANTOPRAZOLE SODIUM [Concomitant]

REACTIONS (2)
  - DRUG TOXICITY [None]
  - SOMNOLENCE [None]
